FAERS Safety Report 19767947 (Version 1)
Quarter: 2021Q3

REPORT INFORMATION
  Report Type: Other
  Country: CN (occurrence: CN)
  Receive Date: 20210830
  Receipt Date: 20210830
  Transmission Date: 20211014
  Serious: Yes (Other)
  Sender: FDA-Public Use
  Company Number: CN-ACELRX PHARMACEUTICALS, INC-ACEL20210728

PATIENT
  Sex: Female

DRUGS (2)
  1. BUPIVACAINE. [Suspect]
     Active Substance: BUPIVACAINE
     Indication: ANALGESIC THERAPY
     Dosage: 0.1% BUPIVACAINE PLUS 10 MCG SUFENTANIL AS A 5 ML EPL BOLUS, AND EPL BOLUS INJECTION OF 10 ML OF 0.1
  2. SUFENTANIL [Suspect]
     Active Substance: SUFENTANIL
     Indication: ANALGESIC THERAPY
     Dosage: 0.1% BUPIVACAINE PLUS 10 MCG SUFENTANIL AS A 5 ML EPL BOLUS, AND EPL BOLUS INJECTION OF 10 ML OF 0.1

REACTIONS (2)
  - Maternal exposure during pregnancy [Recovered/Resolved]
  - Bradycardia foetal [Recovered/Resolved]
